FAERS Safety Report 7756707-1 (Version None)
Quarter: 2011Q3

REPORT INFORMATION
  Report Type: 
  Country: None (occurrence: None)
  Receive Date: 20110916
  Receipt Date: 20110907
  Transmission Date: 20111222
  Serious: Yes (Disabling)
  Sender: FDA-Public Use
  Company Number: AU-B.I. PHARMACEUTICALS,INC./RIDGEFIELD-2011-AU-01417AU

PATIENT
  Sex: Female

DRUGS (4)
  1. PRADAXA [Suspect]
     Indication: ATRIAL FIBRILLATION
     Dosage: 220 MG
     Dates: start: 20110715, end: 20110906
  2. DILTIAZEM [Concomitant]
     Dosage: 180 MG
  3. DIGOXIN [Concomitant]
     Dosage: 125 MCG
  4. FUROSEMIDE [Concomitant]
     Dosage: 80 MG

REACTIONS (1)
  - MYALGIA [None]
